FAERS Safety Report 4725039-8 (Version None)
Quarter: 2005Q3

REPORT INFORMATION
  Report Type: 
  Country: None (occurrence: None)
  Receive Date: 20050722
  Receipt Date: 20050712
  Transmission Date: 20060218
  Serious: Yes (Hospitalization)
  Sender: FDA-Public Use
  Company Number: SUS1-2005-00529

PATIENT
  Age: 58 Year
  Sex: Male

DRUGS (1)
  1. DEXTROSTAT [Suspect]
     Indication: NARCOLEPSY
     Dosage: 10 MG, 4X/DAY; QID, ORAL
     Route: 048

REACTIONS (2)
  - ACUTE MYOCARDIAL INFARCTION [None]
  - HYPERSOMNIA [None]
